FAERS Safety Report 5929703-4 (Version None)
Quarter: 2008Q4

REPORT INFORMATION
  Report Type: 
  Country: None (occurrence: None)
  Receive Date: 20081024
  Receipt Date: 20081017
  Transmission Date: 20090506
  Serious: Yes (Other)
  Sender: FDA-Public Use
  Company Number: US-BAYER-200813915BCC

PATIENT
  Age: 64 Year
  Sex: Male
  Weight: 95 kg

DRUGS (3)
  1. ASPIRIN [Suspect]
     Indication: PAIN
     Dosage: UNIT DOSE: 325 MG
     Route: 048
  2. MONOPRIL [Concomitant]
  3. ATENOLOL [Concomitant]

REACTIONS (1)
  - ULCER HAEMORRHAGE [None]
